FAERS Safety Report 24681353 (Version 2)
Quarter: 2024Q4

REPORT INFORMATION
  Report Type: Report from Study
  Country: US (occurrence: US)
  Receive Date: 20241129
  Receipt Date: 20241212
  Transmission Date: 20250115
  Serious: Yes (Hospitalization, Other)
  Sender: ABBVIE
  Company Number: US-ABBVIE-6020721

PATIENT
  Age: 75 Year
  Sex: Female

DRUGS (2)
  1. HUMIRA [Suspect]
     Active Substance: ADALIMUMAB
     Indication: Rheumatoid arthritis
     Dosage: CITRATE FREE
     Route: 058
     Dates: start: 20231101, end: 20240106
  2. HUMIRA [Suspect]
     Active Substance: ADALIMUMAB
     Dosage: CITRATE FREE
     Route: 058
     Dates: start: 20240626, end: 20241125

REACTIONS (12)
  - Fall [Recovered/Resolved]
  - Multiple fractures [Recovering/Resolving]
  - Cardiac disorder [Recovering/Resolving]
  - Bladder disorder [Not Recovered/Not Resolved]
  - Intra-abdominal haematoma [Recovered/Resolved]
  - Loss of consciousness [Recovered/Resolved]
  - Musculoskeletal disorder [Unknown]
  - Urinary tract infection [Unknown]
  - Blood sodium decreased [Not Recovered/Not Resolved]
  - Haemoglobin decreased [Not Recovered/Not Resolved]
  - Dyspnoea [Not Recovered/Not Resolved]
  - Immunodeficiency [Unknown]

NARRATIVE: CASE EVENT DATE: 20240101
